FAERS Safety Report 25671755 (Version 1)
Quarter: 2025Q3

REPORT INFORMATION
  Report Type: Spontaneous
  Country: US (occurrence: US)
  Receive Date: 20250812
  Receipt Date: 20250812
  Transmission Date: 20251021
  Serious: No
  Sender: PFIZER
  Company Number: US-PFIZER INC-202500160466

PATIENT
  Age: 68 Year
  Sex: Male

DRUGS (15)
  1. PAXLOVID [Suspect]
     Active Substance: NIRMATRELVIR\RITONAVIR
     Indication: COVID-19 treatment
     Dosage: [NIRMATRELVIR 300 MG]/[RITONAVIR 100 MG]; 2X/DAY
     Dates: start: 20250729, end: 20250803
  2. OZEMPIC [Concomitant]
     Active Substance: SEMAGLUTIDE
     Dates: start: 202407
  3. FLUTICASONE PROPIONATE [Concomitant]
     Active Substance: FLUTICASONE PROPIONATE
     Dates: start: 202501
  4. BENZONATATE [Concomitant]
     Active Substance: BENZONATATE
     Dates: start: 20250729
  5. FAMOTIDINE [Concomitant]
     Active Substance: FAMOTIDINE
     Dates: start: 200401
  6. TAMSULOSIN [Concomitant]
     Active Substance: TAMSULOSIN
     Dates: start: 202208
  7. ATORVASTATIN [Concomitant]
     Active Substance: ATORVASTATIN
     Dates: start: 200801
  8. JARDIANCE [Concomitant]
     Active Substance: EMPAGLIFLOZIN
     Dates: start: 202101
  9. FINASTERIDE [Concomitant]
     Active Substance: FINASTERIDE
     Dates: start: 202208
  10. METOPROLOL SUCCINATE [Concomitant]
     Active Substance: METOPROLOL SUCCINATE
     Dates: start: 202409
  11. LOSARTAN [Concomitant]
     Active Substance: LOSARTAN
     Dates: start: 202101
  12. ICOSAPENT ETHYL [Concomitant]
     Active Substance: ICOSAPENT ETHYL
     Dates: start: 202409
  13. VITAMIN D3 [Concomitant]
     Active Substance: CHOLECALCIFEROL
     Dates: start: 201701
  14. DIPHENHYDRAMINE [Concomitant]
     Active Substance: DIPHENHYDRAMINE
     Dates: start: 202001
  15. LORATADINE [Concomitant]
     Active Substance: LORATADINE
     Dates: start: 201405

REACTIONS (2)
  - COVID-19 [Recovering/Resolving]
  - Disease recurrence [Recovering/Resolving]

NARRATIVE: CASE EVENT DATE: 20250809
